FAERS Safety Report 6423253-7 (Version None)
Quarter: 2009Q4

REPORT INFORMATION
  Report Type: 
  Country: None (occurrence: None)
  Receive Date: 20091102
  Receipt Date: 20091029
  Transmission Date: 20100525
  Serious: Yes (Hospitalization)
  Sender: FDA-Public Use
  Company Number: GXKR2009DE11108

PATIENT
  Sex: Male
  Weight: 70 kg

DRUGS (3)
  1. CLOPIDOGREL [Suspect]
     Indication: HAEMODILUTION
     Dosage: 75 MG, UNK
     Route: 048
  2. CLOPIDOGREL [Interacting]
     Dosage: 37.5 MG, QD
     Route: 048
  3. ACETYLSALICYLIC ACID SRT [Interacting]
     Dosage: 100 MG, UNK
     Route: 048

REACTIONS (5)
  - BONE DISORDER [None]
  - HAEMATURIA [None]
  - PROSTATE CANCER STAGE III [None]
  - URETHRAL OBSTRUCTION [None]
  - URETHRAL PAIN [None]
